FAERS Safety Report 6361504-8 (Version None)
Quarter: 2009Q3

REPORT INFORMATION
  Report Type: 
  Country: None (occurrence: None)
  Receive Date: 20090918
  Receipt Date: 20090914
  Transmission Date: 20100115
  Serious: Yes (Hospitalization, Other)
  Sender: FDA-Public Use
  Company Number: US-AVENTIS-200716003US

PATIENT
  Sex: Female

DRUGS (9)
  1. KETEK [Suspect]
     Indication: SINUSITIS
     Dosage: DOSE: 2 TABS OF 400 MG
     Route: 048
     Dates: start: 20050805, end: 20050811
  2. PREDNISONE [Suspect]
     Indication: SWELLING
     Dosage: DOSE: 40,30,20
     Dates: start: 20050824, end: 20050827
  3. AUGMENTIN '125' [Concomitant]
     Dosage: DOSE: UNK
  4. ADVIL [Concomitant]
     Dosage: DOSE: UNK
  5. NEXIUM [Concomitant]
     Dosage: DOSE: UNK
  6. PRILOSEC [Concomitant]
     Dosage: DOSE: UNK
  7. FLONASE [Concomitant]
  8. AMOXICILLIN + CLAVULANATE POTASSIUM [Concomitant]
     Dates: start: 20050915
  9. IMURAN                             /00001501/ [Concomitant]
     Dosage: DOSE: UNK

REACTIONS (37)
  - ABDOMINAL DISTENSION [None]
  - ABDOMINAL TENDERNESS [None]
  - ANTIBODY TEST POSITIVE [None]
  - ARTHRALGIA [None]
  - AUTOIMMUNE HEPATITIS [None]
  - BLOOD AMYLASE INCREASED [None]
  - BLOOD BILIRUBIN INCREASED [None]
  - BLOOD GLUCOSE INCREASED [None]
  - BURNING SENSATION [None]
  - CARPAL TUNNEL SYNDROME [None]
  - CHOLECYSTITIS [None]
  - CHOLELITHIASIS [None]
  - CHROMATURIA [None]
  - DECREASED APPETITE [None]
  - FATIGUE [None]
  - HEADACHE [None]
  - HEPATITIS [None]
  - HEPATOMEGALY [None]
  - HYPOAESTHESIA [None]
  - HYPONATRAEMIA [None]
  - JAUNDICE [None]
  - LABORATORY TEST ABNORMAL [None]
  - LIPASE INCREASED [None]
  - LIVER DISORDER [None]
  - LIVER FUNCTION TEST ABNORMAL [None]
  - MURPHY'S SIGN POSITIVE [None]
  - MYALGIA [None]
  - NAUSEA [None]
  - OSTEOPENIA [None]
  - PANCREATITIS ACUTE [None]
  - PANCREATOBILIARY SPHINCTEROTOMY [None]
  - PARAESTHESIA [None]
  - POLYARTHRITIS [None]
  - PRURITUS [None]
  - PRURITUS GENERALISED [None]
  - PYREXIA [None]
  - WEIGHT DECREASED [None]
